FAERS Safety Report 7414551-9 (Version None)
Quarter: 2011Q2

REPORT INFORMATION
  Report Type: 
  Country: None (occurrence: None)
  Receive Date: 20110411
  Receipt Date: 20110411
  Transmission Date: 20111010
  Serious: Yes (Life-Threatening, Hospitalization)
  Sender: FDA-Public Use
  Company Number: None

PATIENT
  Age: 4 Year
  Sex: Female
  Weight: 13.6079 kg

DRUGS (1)
  1. CEPHALEXIN [Suspect]
     Indication: STREPTOCOCCAL INFECTION
     Dates: start: 20100527, end: 20100529

REACTIONS (7)
  - DEHYDRATION [None]
  - VOMITING [None]
  - PALPITATIONS [None]
  - DIARRHOEA [None]
  - CHEST PAIN [None]
  - HALLUCINATION [None]
  - MALAISE [None]
